FAERS Safety Report 18068509 (Version 1)
Quarter: 2020Q3

REPORT INFORMATION
  Report Type: Spontaneous
  Country: FI (occurrence: FI)
  Receive Date: 20200724
  Receipt Date: 20200724
  Transmission Date: 20201103
  Serious: Yes (Hospitalization)
  Sender: FDA-Public Use
  Company Number: FI-BAYER-2020-144038

PATIENT
  Age: 69 Year
  Sex: Female

DRUGS (8)
  1. STIVARGA [Suspect]
     Active Substance: REGORAFENIB
     Indication: HEPATIC CANCER
     Dosage: 40,MG,DAILY
     Route: 048
     Dates: start: 20180604, end: 20200619
  2. INNOHEP [Concomitant]
     Active Substance: TINZAPARIN SODIUM
     Indication: THROMBOSIS PROPHYLAXIS
     Dosage: 9000,IU,DAILY
     Route: 058
  3. AMLODIPINE [Concomitant]
     Active Substance: AMLODIPINE BESYLATE
     Indication: HYPERTENSION
     Dosage: 10,MG,DAILY
     Route: 048
  4. HYPOLOC [Concomitant]
     Indication: HYPERTENSION
     Dosage: 5,MG,DAILY
     Route: 048
  5. HYDREX [HYDROCHLOROTHIAZIDE] [Concomitant]
     Indication: HYPERTENSION
     Dosage: 25,MG,DAILY
     Route: 048
  6. ELIQUIS [Concomitant]
     Active Substance: APIXABAN
     Indication: CEREBROVASCULAR ACCIDENT PROPHYLAXIS
     Dosage: 10,MG,DAILY
     Route: 048
     Dates: start: 20200320, end: 20200619
  7. METFOREM [Concomitant]
     Active Substance: METFORMIN HYDROCHLORIDE
     Indication: TYPE 2 DIABETES MELLITUS
     Dosage: 500,MG,DAILY
     Route: 048
  8. JARDIANCE [Concomitant]
     Active Substance: EMPAGLIFLOZIN
     Indication: TYPE 2 DIABETES MELLITUS
     Dosage: 10,MG,DAILY
     Route: 048

REACTIONS (5)
  - Cerebral infarction [Recovering/Resolving]
  - Hypertriglyceridaemia [Recovering/Resolving]
  - Cerebral arteriosclerosis [Recovering/Resolving]
  - Transient ischaemic attack [Recovering/Resolving]
  - Hypercholesterolaemia [Recovering/Resolving]

NARRATIVE: CASE EVENT DATE: 201910
